FAERS Safety Report 5186956-0 (Version None)
Quarter: 2006Q4

REPORT INFORMATION
  Report Type: 
  Country: None (occurrence: None)
  Receive Date: 20061213
  Receipt Date: 20061130
  Transmission Date: 20070319
  Serious: Yes (Other)
  Sender: FDA-Public Use
  Company Number: 2006119580

PATIENT
  Age: 47 Year
  Sex: Male
  Weight: 77.1115 kg

DRUGS (2)
  1. LYRICA [Suspect]
     Indication: NEURITIS
     Dosage: 300 MG (150 MG, 2 IN 1 D)
  2. LORTAB [Concomitant]

REACTIONS (1)
  - RETINAL VEIN THROMBOSIS [None]
